FAERS Safety Report 13609168 (Version 2)
Quarter: 2017Q3

REPORT INFORMATION
  Report Type: Spontaneous
  Country: US (occurrence: US)
  Receive Date: 20170602
  Receipt Date: 20170808
  Transmission Date: 20171127
  Serious: Yes (Other)
  Sender: FDA-Public Use
  Company Number: US-BAYER-2017-105835

PATIENT
  Age: 37 Year
  Sex: Female
  Weight: 87.1 kg

DRUGS (6)
  1. SPIRONOLACTONE. [Concomitant]
     Active Substance: SPIRONOLACTONE
     Dosage: 100 MG, UNK
     Route: 048
  2. MESALAMINE. [Concomitant]
     Active Substance: MESALAMINE
     Dosage: 1000 MG, UNK
     Route: 048
  3. CITALOPRAM [Concomitant]
     Active Substance: CITALOPRAM HYDROBROMIDE
     Dosage: 20 MG, UNK
     Route: 048
  4. MIRENA [Suspect]
     Active Substance: LEVONORGESTREL
     Indication: CONTRACEPTION
     Dosage: 20 MCG/24HR, CONT
     Route: 015
     Dates: start: 20170523
  5. MIRENA [Suspect]
     Active Substance: LEVONORGESTREL
     Indication: CONTRACEPTION
     Dosage: 20 MCG/24HR, CONT
     Route: 015
     Dates: start: 20170523, end: 20170523
  6. NORGESTIMATE [Concomitant]
     Active Substance: NORGESTIMATE
     Dosage: UNK
     Route: 048

REACTIONS (5)
  - Complication of device insertion [None]
  - Device use issue [None]
  - Device deployment issue [None]
  - Expired device used [None]
  - Procedural haemorrhage [None]

NARRATIVE: CASE EVENT DATE: 20170523
